FAERS Safety Report 24967210 (Version 2)
Quarter: 2025Q1

REPORT INFORMATION
  Report Type: Spontaneous
  Country: JP (occurrence: JP)
  Receive Date: 20250213
  Receipt Date: 20250323
  Transmission Date: 20250409
  Serious: Yes (Hospitalization, Other)
  Sender: VIIV
  Company Number: JP-ViiV Healthcare-93855

PATIENT

DRUGS (1)
  1. TRIUMEQ [Suspect]
     Active Substance: ABACAVIR SULFATE\DOLUTEGRAVIR SODIUM\LAMIVUDINE

REACTIONS (1)
  - Gastric cancer [Unknown]
